FAERS Safety Report 6787434-5 (Version None)
Quarter: 2010Q2

REPORT INFORMATION
  Report Type: 
  Country: None (occurrence: None)
  Receive Date: 20100623
  Receipt Date: 20070511
  Transmission Date: 20101027
  Serious: No
  Sender: FDA-Public Use
  Company Number: US-PFIZER INC-2006026159

PATIENT
  Sex: Female
  Weight: 74.84 kg

DRUGS (7)
  1. SOLU-MEDROL [Suspect]
     Indication: MULTIPLE SCLEROSIS
     Route: 042
     Dates: start: 20030725
  2. ACIPHEX [Concomitant]
     Route: 048
     Dates: start: 20040119
  3. LEXAPRO [Concomitant]
     Route: 048
     Dates: start: 20031230
  4. COPAXONE [Concomitant]
     Route: 058
     Dates: start: 20031027
  5. CALCIUM WITH VITAMIN D [Concomitant]
     Route: 048
     Dates: start: 20051024
  6. BENADRYL [Concomitant]
     Route: 048
     Dates: start: 20031027
  7. NYQUIL [Concomitant]
     Route: 048
     Dates: start: 20030922

REACTIONS (1)
  - DYSGEUSIA [None]
